FAERS Safety Report 16921636 (Version 1)
Quarter: 2019Q4

REPORT INFORMATION
  Report Type: Report from Study
  Country: None (occurrence: AU)
  Receive Date: 20191015
  Receipt Date: 20191015
  Transmission Date: 20200122
  Serious: Yes (Hospitalization)
  Sender: FDA-Public Use
  Company Number: AU-ABBVIE-19P-008-2955421-00

PATIENT
  Age: 3 Year
  Sex: Female
  Weight: 14.8 kg

DRUGS (28)
  1. CYCLOPHOSPHAMIDE. [Suspect]
     Active Substance: CYCLOPHOSPHAMIDE
     Route: 042
     Dates: start: 20190918, end: 20190922
  2. TOPOTECAN HYDROCHLORIDE. [Suspect]
     Active Substance: TOPOTECAN HYDROCHLORIDE
     Route: 042
     Dates: start: 20190604, end: 20190608
  3. TOPOTECAN HYDROCHLORIDE. [Suspect]
     Active Substance: TOPOTECAN HYDROCHLORIDE
     Route: 042
     Dates: start: 20190625, end: 20190629
  4. PARACETAMOL [Concomitant]
     Active Substance: ACETAMINOPHEN
     Indication: PYREXIA
     Route: 050
     Dates: start: 20190406, end: 20190501
  5. FILGRASTIM [Concomitant]
     Active Substance: FILGRASTIM
     Indication: PROPHYLAXIS
     Dosage: 24 HOURS POST EACH CHEMO CYCLE
     Route: 058
     Dates: start: 20190429, end: 20190923
  6. TOPOTECAN HYDROCHLORIDE. [Suspect]
     Active Substance: TOPOTECAN HYDROCHLORIDE
     Indication: REFRACTORY CANCER
     Route: 042
     Dates: start: 20190424, end: 20190428
  7. CYCLOPHOSPHAMIDE. [Suspect]
     Active Substance: CYCLOPHOSPHAMIDE
     Route: 042
     Dates: start: 20190715, end: 20190719
  8. CYCLOPHOSPHAMIDE. [Suspect]
     Active Substance: CYCLOPHOSPHAMIDE
     Route: 042
     Dates: start: 20190806, end: 20190810
  9. TOPOTECAN HYDROCHLORIDE. [Suspect]
     Active Substance: TOPOTECAN HYDROCHLORIDE
     Route: 042
     Dates: start: 20190715, end: 20190719
  10. TOPOTECAN HYDROCHLORIDE. [Suspect]
     Active Substance: TOPOTECAN HYDROCHLORIDE
     Route: 042
     Dates: start: 20190918, end: 20190922
  11. PARACETAMOL [Concomitant]
     Active Substance: ACETAMINOPHEN
     Route: 050
     Dates: start: 20190501
  12. TOPOTECAN HYDROCHLORIDE. [Suspect]
     Active Substance: TOPOTECAN HYDROCHLORIDE
     Route: 042
     Dates: start: 20190826, end: 20190830
  13. PANADOL [Concomitant]
     Active Substance: ACETAMINOPHEN
     Indication: PAIN
     Route: 050
     Dates: start: 20190305
  14. TOPOTECAN HYDROCHLORIDE. [Suspect]
     Active Substance: TOPOTECAN HYDROCHLORIDE
     Indication: RECURRENT CANCER
     Route: 042
     Dates: start: 20190328, end: 20190401
  15. PANADOL [Concomitant]
     Active Substance: ACETAMINOPHEN
     Indication: PYREXIA
  16. OXYCODONE [Concomitant]
     Active Substance: OXYCODONE
     Indication: PAIN
     Route: 050
     Dates: start: 20190305
  17. CYCLOPHOSPHAMIDE. [Suspect]
     Active Substance: CYCLOPHOSPHAMIDE
     Route: 042
     Dates: start: 20190604, end: 20190608
  18. CYCLOPHOSPHAMIDE. [Suspect]
     Active Substance: CYCLOPHOSPHAMIDE
     Route: 042
     Dates: start: 20190625, end: 20190629
  19. TOPOTECAN HYDROCHLORIDE. [Suspect]
     Active Substance: TOPOTECAN HYDROCHLORIDE
     Route: 042
     Dates: start: 20190515, end: 20190519
  20. PENTAMIDINE [Concomitant]
     Active Substance: PENTAMIDINE
     Indication: ANTIBIOTIC PROPHYLAXIS
     Dosage: MONTHLY
     Route: 042
     Dates: start: 20190416
  21. VENETOCLAX. [Suspect]
     Active Substance: VENETOCLAX
     Indication: RECURRENT CANCER
     Route: 048
     Dates: start: 20190326, end: 20190326
  22. CYCLOPHOSPHAMIDE. [Suspect]
     Active Substance: CYCLOPHOSPHAMIDE
     Indication: REFRACTORY CANCER
     Route: 042
     Dates: start: 20190424, end: 20190428
  23. CYCLOPHOSPHAMIDE. [Suspect]
     Active Substance: CYCLOPHOSPHAMIDE
     Route: 042
     Dates: start: 20190515, end: 20190519
  24. AMOXYCILLIN [Concomitant]
     Active Substance: AMOXICILLIN
     Indication: OTITIS MEDIA
     Route: 050
     Dates: start: 20190828, end: 20190902
  25. TOPOTECAN HYDROCHLORIDE. [Suspect]
     Active Substance: TOPOTECAN HYDROCHLORIDE
     Route: 042
     Dates: start: 20190806, end: 20190810
  26. VENETOCLAX. [Suspect]
     Active Substance: VENETOCLAX
     Indication: REFRACTORY CANCER
     Route: 048
     Dates: start: 20190327, end: 20190926
  27. CYCLOPHOSPHAMIDE. [Suspect]
     Active Substance: CYCLOPHOSPHAMIDE
     Indication: RECURRENT CANCER
     Route: 042
     Dates: start: 20190328, end: 20190401
  28. CYCLOPHOSPHAMIDE. [Suspect]
     Active Substance: CYCLOPHOSPHAMIDE
     Route: 042
     Dates: start: 20190826, end: 20190830

REACTIONS (1)
  - Otitis media [Recovered/Resolved]

NARRATIVE: CASE EVENT DATE: 20191007
